FAERS Safety Report 10209733 (Version 1)
Quarter: 2014Q2

REPORT INFORMATION
  Report Type: Spontaneous
  Country: IL (occurrence: IL)
  Receive Date: 20140602
  Receipt Date: 20140602
  Transmission Date: 20141212
  Serious: Yes (Death)
  Sender: FDA-Public Use
  Company Number: IL-ROCHE-1409334

PATIENT
  Age: 65 Year
  Sex: Male

DRUGS (1)
  1. HERCEPTIN [Suspect]
     Indication: LUNG CANCER METASTATIC
     Route: 042
     Dates: start: 201310

REACTIONS (3)
  - Drug ineffective [Unknown]
  - Disease progression [Fatal]
  - Off label use [Unknown]
